FAERS Safety Report 8444210-5 (Version None)
Quarter: 2012Q2

REPORT INFORMATION
  Report Type: 
  Country: None (occurrence: None)
  Receive Date: 20120618
  Receipt Date: 20120611
  Transmission Date: 20120825
  Serious: Yes (Hospitalization, Other)
  Sender: FDA-Public Use
  Company Number: DE-UCBSA-053889

PATIENT
  Age: 23 Year
  Sex: Female

DRUGS (1)
  1. KEPPRA [Suspect]
     Indication: EPILEPSY

REACTIONS (4)
  - MATERNAL EXPOSURE DURING PREGNANCY [None]
  - NASOPHARYNGITIS [None]
  - CAESAREAN SECTION [None]
  - IRON DEFICIENCY [None]
